FAERS Safety Report 5047471-8 (Version None)
Quarter: 2006Q3

REPORT INFORMATION
  Report Type: 
  Country: None (occurrence: None)
  Receive Date: 20060703
  Receipt Date: 20060623
  Transmission Date: 20061208
  Serious: Yes (Hospitalization)
  Sender: FDA-Public Use
  Company Number: 2006001296

PATIENT
  Age: 72 Year
  Sex: Male
  Weight: 75.7 kg

DRUGS (2)
  1. ERLOTINIB (TABLET) (ERLOTINIB HC1) [Suspect]
     Indication: NON-SMALL CELL LUNG CANCER
     Dosage: 150 MG (QD), ORAL
     Route: 048
     Dates: start: 20060412
  2. BEVACIZUMAB (INJECTION FOR INFUSION) [Suspect]
     Indication: NON-SMALL CELL LUNG CANCER
     Dosage: 15 MG/KG (QD), INTRAVENOUS
     Route: 042
     Dates: start: 20060412

REACTIONS (5)
  - BAND NEUTROPHIL PERCENTAGE INCREASED [None]
  - DIVERTICULAR PERFORATION [None]
  - INTESTINAL OBSTRUCTION [None]
  - NEPHROLITHIASIS [None]
  - PULMONARY MASS [None]
